FAERS Safety Report 5225024-6 (Version None)
Quarter: 2007Q1

REPORT INFORMATION
  Report Type: 
  Country: None (occurrence: None)
  Receive Date: 20070131
  Receipt Date: 20070126
  Transmission Date: 20070707
  Serious: Yes (Hospitalization)
  Sender: FDA-Public Use
  Company Number: CA-GLAXOSMITHKLINE-A0622007A

PATIENT
  Age: 42 Year
  Sex: Male

DRUGS (3)
  1. IMITREX [Suspect]
     Indication: MIGRAINE
     Dosage: 200MG PER DAY
     Route: 048
  2. DICLOFENAC SODIUM [Concomitant]
     Dosage: 150MG PER DAY
     Route: 048
  3. ZOPICLONE [Concomitant]
     Dosage: 15MG PER DAY

REACTIONS (7)
  - COMPARTMENT SYNDROME [None]
  - CYANOSIS [None]
  - DRUG ABUSER [None]
  - HYPOAESTHESIA [None]
  - MUSCULAR WEAKNESS [None]
  - PAIN IN EXTREMITY [None]
  - SULPHAEMOGLOBIN INCREASED [None]
